FAERS Safety Report 22540658 (Version 1)
Quarter: 2023Q2

REPORT INFORMATION
  Report Type: Report from Study
  Country: BR (occurrence: BR)
  Receive Date: 20230609
  Receipt Date: 20230609
  Transmission Date: 20230721
  Serious: Yes (Other)
  Sender: FDA-Public Use
  Company Number: BR-JNJFOC-20230606915

PATIENT
  Age: 44 Year
  Sex: Female

DRUGS (5)
  1. SIMPONI [Suspect]
     Active Substance: GOLIMUMAB
     Indication: Rheumatoid arthritis
     Dosage: 50MG/0.5ML
     Route: 058
     Dates: start: 20221123
  2. SIMPONI [Suspect]
     Active Substance: GOLIMUMAB
  3. NORTRIPTYLINE [Concomitant]
     Active Substance: NORTRIPTYLINE
     Indication: Product used for unknown indication
  4. PREDNISONE [Concomitant]
     Active Substance: PREDNISONE
     Indication: Product used for unknown indication
  5. ESOMEPRAZOLE MAGNESIUM [Concomitant]
     Active Substance: ESOMEPRAZOLE MAGNESIUM
     Indication: Product used for unknown indication

REACTIONS (6)
  - Haemorrhoidal haemorrhage [Recovered/Resolved]
  - Eating disorder [Unknown]
  - Abnormal loss of weight [Unknown]
  - Bursitis [Unknown]
  - Cough [Recovering/Resolving]
  - Swelling [Unknown]

NARRATIVE: CASE EVENT DATE: 20230501
